FAERS Safety Report 24434961 (Version 1)
Quarter: 2024Q4

REPORT INFORMATION
  Report Type: Spontaneous
  Country: ES (occurrence: ES)
  Receive Date: 20241014
  Receipt Date: 20241014
  Transmission Date: 20250115
  Serious: Yes (Death)
  Sender: SHIONOGI
  Company Number: ES-shionogi-202400001241

PATIENT
  Age: 56 Year
  Sex: Male

DRUGS (6)
  1. CEFIDEROCOL [Suspect]
     Active Substance: CEFIDEROCOL
     Indication: Achromobacter infection
     Route: 065
  2. CEFIDEROCOL [Suspect]
     Active Substance: CEFIDEROCOL
     Indication: Bacteraemia
  3. CEFIDEROCOL [Suspect]
     Active Substance: CEFIDEROCOL
     Indication: Infection
  4. COLISTIN [Suspect]
     Active Substance: COLISTIN
     Indication: Achromobacter infection
     Route: 042
  5. COLISTIN [Suspect]
     Active Substance: COLISTIN
     Indication: Bacteraemia
  6. COLISTIN [Suspect]
     Active Substance: COLISTIN
     Indication: Infection

REACTIONS (4)
  - Death [Fatal]
  - No adverse event [Unknown]
  - Treatment failure [Unknown]
  - Drug resistance [Unknown]
